FAERS Safety Report 9373506 (Version 3)
Quarter: 2014Q2

REPORT INFORMATION
  Report Type: Report from Study
  Country: US (occurrence: US)
  Receive Date: 20130627
  Receipt Date: 20140424
  Transmission Date: 20141212
  Serious: Yes (Hospitalization)
  Sender: FDA-Public Use
  Company Number: PHHO2011US12993

PATIENT
  Age: 58 Year
  Sex: Male
  Weight: 105.5 kg

DRUGS (4)
  1. ACZ885 [Suspect]
     Indication: GOUTY ARTHRITIS
     Dosage: 150 MG, UNK
     Route: 058
     Dates: start: 20110630
  2. LISINOPRIL/HCTZ [Concomitant]
     Indication: HYPERTENSION
     Dosage: 1 DF (20/25 MG), UNK
     Route: 048
     Dates: start: 2010
  3. ALLOPURINOL [Concomitant]
     Indication: GOUT
     Dosage: 300 MG, QD
     Route: 048
     Dates: start: 2000
  4. TUMS [Concomitant]
     Indication: GASTROOESOPHAGEAL REFLUX DISEASE
     Dosage: 2 DF, PRN
     Route: 048
     Dates: start: 2000

REACTIONS (1)
  - Viral infection [Recovered/Resolved]
